FAERS Safety Report 7325524-9 (Version None)
Quarter: 2011Q1

REPORT INFORMATION
  Report Type: 
  Country: None (occurrence: None)
  Receive Date: 20110302
  Receipt Date: 20110218
  Transmission Date: 20110831
  Serious: Yes (Hospitalization)
  Sender: FDA-Public Use
  Company Number: US-ELI_LILLY_AND_COMPANY-US201102005497

PATIENT
  Sex: Male

DRUGS (12)
  1. HUMALOG [Suspect]
     Indication: TYPE 2 DIABETES MELLITUS
     Dosage: 12 U, UNKNOWN
     Dates: start: 20000101
  2. LANTUS [Concomitant]
     Dosage: 80 U, UNKNOWN
  3. HUMALOG [Suspect]
     Dosage: 20 U, UNKNOWN
  4. HUMALOG [Suspect]
     Dosage: 18 U, UNKNOWN
  5. HUMALOG [Suspect]
     Dosage: 24 U, UNKNOWN
     Dates: start: 20110215, end: 20110215
  6. ACTOS [Concomitant]
     Dosage: UNK, UNK
  7. GLUCOPHAGE [Concomitant]
  8. HUMALOG [Suspect]
     Dosage: 20 U, UNKNOWN
  9. LANTUS [Concomitant]
     Dosage: 50 U, UNKNOWN
  10. HUMALOG [Suspect]
     Dosage: 12 U, UNKNOWN
  11. HUMALOG [Suspect]
     Dosage: 18 U, UNKNOWN
  12. HUMALOG [Suspect]
     Dosage: 18 U, UNKNOWN
     Dates: start: 20110215, end: 20110215

REACTIONS (9)
  - CORONARY ARTERY DISEASE [None]
  - BLOOD POTASSIUM INCREASED [None]
  - ANAEMIA [None]
  - BLOOD GLUCOSE DECREASED [None]
  - BLOOD GLUCOSE INCREASED [None]
  - WEIGHT INCREASED [None]
  - RENAL IMPAIRMENT [None]
  - HUNGER [None]
  - INCORRECT DOSE ADMINISTERED [None]
